FAERS Safety Report 11020301 (Version 7)
Quarter: 2016Q2

REPORT INFORMATION
  Report Type: Report from Study
  Country: CZ (occurrence: CZ)
  Receive Date: 20150413
  Receipt Date: 20160524
  Transmission Date: 20160815
  Serious: Yes (Hospitalization)
  Sender: FDA-Public Use
  Company Number: CZ-UCBSA-097128

PATIENT
  Age: 60 Year
  Sex: Female
  Weight: 83 kg

DRUGS (6)
  1. KLACID [Concomitant]
     Active Substance: CLARITHROMYCIN
     Indication: PNEUMONIA
     Dosage: 500 MG, 2X/DAY (BID)
     Route: 048
     Dates: start: 201308, end: 201308
  2. FRAXIPARINE [Concomitant]
     Active Substance: NADROPARIN CALCIUM
     Indication: THROMBOSIS
     Dosage: .8 ML, 2X/DAY (BID)
     Route: 058
     Dates: start: 20130806
  3. *ADALIMUMAB [Suspect]
     Active Substance: ADALIMUMAB
     Indication: RHEUMATOID ARTHRITIS
     Dosage: CERTOLIZUMAB PEGOL 200MG/ADALIMUMAB 40MG, EV 2 WEEKS(QOW)
     Route: 058
     Dates: start: 20130425, end: 20130716
  4. AUGMENTIN [Concomitant]
     Active Substance: AMOXICILLIN\CLAVULANATE POTASSIUM
     Indication: PNEUMONIA
     Dosage: 1 G, 3X/DAY (TID)
     Route: 048
     Dates: start: 201308, end: 201308
  5. METHOTREXATE [Concomitant]
     Active Substance: METHOTREXATE
     Indication: RHEUMATOID ARTHRITIS
     Dosage: 20 MG, UNK
     Dates: start: 2010
  6. METYPRED [Concomitant]
     Active Substance: METHYLPREDNISOLONE
     Indication: RHEUMATOID ARTHRITIS
     Dosage: 4 MG, 2X/DAY (BID)
     Dates: start: 2007

REACTIONS (2)
  - Pneumonia [Recovered/Resolved]
  - Disseminated tuberculosis [Recovered/Resolved]

NARRATIVE: CASE EVENT DATE: 20130806
